FAERS Safety Report 7822677-0 (Version None)
Quarter: 2011Q4

REPORT INFORMATION
  Report Type: 
  Country: None (occurrence: None)
  Receive Date: 20111018
  Receipt Date: 20111007
  Transmission Date: 20120403
  Serious: Yes (Hospitalization)
  Sender: FDA-Public Use
  Company Number: CH-ROCHE-711786

PATIENT
  Sex: Male
  Weight: 77.3 kg

DRUGS (5)
  1. VEMURAFENIB [Suspect]
     Dosage: FREQUENCY: 4-0-4
     Route: 048
  2. ACETAMINOPHEN [Concomitant]
     Dates: start: 20100623, end: 20100625
  3. FENTANYL [Concomitant]
     Dosage: TOTAL DAILY DOSE: 25 MCG TS
     Dates: start: 20100623, end: 20100625
  4. MORPHINE [Concomitant]
     Dosage: DRUG REPORTED AS MORPHIUM
     Dates: start: 20100623, end: 20100625
  5. VEMURAFENIB [Suspect]
     Indication: METASTATIC MALIGNANT MELANOMA
     Dosage: FREQUENCY: 4-0-4, LAST DOSE PRIOR TO SAE: 21 JUNE 2010
     Route: 048
     Dates: start: 20100615, end: 20100622

REACTIONS (2)
  - ABDOMINAL PAIN [None]
  - ARTHRALGIA [None]
